FAERS Safety Report 21048864 (Version 3)
Quarter: 2022Q3

REPORT INFORMATION
  Report Type: Spontaneous
  Country: US (occurrence: US)
  Receive Date: 20220706
  Receipt Date: 20220923
  Transmission Date: 20221027
  Serious: No
  Sender: FDA-Public Use
  Company Number: US-PFIZER INC-202200920660

PATIENT
  Age: 53 Year
  Sex: Female
  Weight: 68.481 kg

DRUGS (4)
  1. PAXLOVID [Suspect]
     Active Substance: NIRMATRELVIR\RITONAVIR
     Indication: COVID-19 treatment
     Dosage: UNK
     Route: 048
     Dates: start: 20220619, end: 20220623
  2. PREDNISONE [Concomitant]
     Active Substance: PREDNISONE
     Dosage: UNK (PREDNISONE 20MG X 3 DAYS)
     Dates: start: 20220601, end: 20220603
  3. ALLEGRA [Concomitant]
     Active Substance: FEXOFENADINE HYDROCHLORIDE
     Dosage: UNK
     Dates: start: 20220401, end: 20220701
  4. FLONASE [Concomitant]
     Active Substance: FLUTICASONE PROPIONATE
     Dosage: UNK
     Dates: start: 20220501, end: 20220701

REACTIONS (5)
  - Cough [Unknown]
  - Throat irritation [Unknown]
  - Malaise [Unknown]
  - COVID-19 [Unknown]
  - Disease recurrence [Unknown]

NARRATIVE: CASE EVENT DATE: 20220701
